FAERS Safety Report 9791721 (Version 1)
Quarter: 2014Q1

REPORT INFORMATION
  Report Type: Spontaneous
  Country: IR (occurrence: IR)
  Receive Date: 20140102
  Receipt Date: 20140102
  Transmission Date: 20141002
  Serious: Yes (Other)
  Sender: FDA-Public Use
  Company Number: IR-ACCORD-021049

PATIENT
  Age: 57 Year
  Sex: Male

DRUGS (3)
  1. AMLODIPINE [Suspect]
     Indication: HYPERTENSIVE CRISIS
  2. CAPTOPRIL [Suspect]
     Indication: HYPERTENSIVE CRISIS
     Dosage: 50 MG BID AND ADD ANOTHER 25 MG.?DOSE WAS TAPPERED.
     Route: 048
  3. ASA [Concomitant]
     Indication: HYPERTENSIVE CRISIS

REACTIONS (1)
  - Headache [Unknown]
